FAERS Safety Report 18515217 (Version 2)
Quarter: 2020Q4

REPORT INFORMATION
  Report Type: Report from Study
  Country: US (occurrence: US)
  Receive Date: 20201118
  Receipt Date: 20201222
  Transmission Date: 20210114
  Serious: Yes (Hospitalization)
  Sender: FDA-Public Use
  Company Number: US-PUMA BIOTECHNOLOGY, LTD.-2020US005993

PATIENT

DRUGS (6)
  1. NERLYNX [Suspect]
     Active Substance: NERATINIB
     Dosage: 240 MG (6 PILLS), DAILY
     Route: 048
     Dates: start: 2020, end: 20201029
  2. XELODA [Suspect]
     Active Substance: CAPECITABINE
     Indication: PRODUCT USED FOR UNKNOWN INDICATION
     Dosage: UNK
     Dates: end: 20201025
  3. NERLYNX [Suspect]
     Active Substance: NERATINIB
     Indication: BREAST CANCER METASTATIC
     Dosage: 160 MG (4 PILLS), DAILY
     Route: 048
     Dates: start: 20201008, end: 202010
  4. NERLYNX [Suspect]
     Active Substance: NERATINIB
     Indication: BREAST CANCER FEMALE
     Dosage: 120 MG (3 PILLS), DAILY
     Route: 048
     Dates: start: 20200928, end: 20201007
  5. LOMOTIL [Concomitant]
     Active Substance: ATROPINE SULFATE\DIPHENOXYLATE HYDROCHLORIDE
     Indication: PROPHYLAXIS AGAINST DIARRHOEA
     Dosage: 1-2 TABLETS, 2-3 TIMES PER DAY
  6. NERLYNX [Suspect]
     Active Substance: NERATINIB
     Dosage: 240 MG (6 PILLS), DAILY
     Route: 048
     Dates: start: 202010, end: 20201025

REACTIONS (8)
  - Gastrostomy [Unknown]
  - Sinus disorder [Not Recovered/Not Resolved]
  - Lower limb fracture [Unknown]
  - Hospice care [Unknown]
  - Vomiting [Not Recovered/Not Resolved]
  - Diarrhoea [Not Recovered/Not Resolved]
  - Drug titration [Unknown]
  - Tumour pain [Not Recovered/Not Resolved]

NARRATIVE: CASE EVENT DATE: 2020
